FAERS Safety Report 14248757 (Version 2)
Quarter: 2017Q4

REPORT INFORMATION
  Report Type: Spontaneous
  Country: US (occurrence: US)
  Receive Date: 20171204
  Receipt Date: 20171220
  Transmission Date: 20180321
  Serious: No
  Sender: FDA-Public Use
  Company Number: US-BAYER-2017-233518

PATIENT
  Age: 62 Year
  Sex: Female
  Weight: 59 kg

DRUGS (1)
  1. MIRALAX [Suspect]
     Active Substance: POLYETHYLENE GLYCOL 3350
     Indication: COLONOSCOPY
     Dosage: UNK
     Route: 048

REACTIONS (3)
  - Inappropriate prescribing [Unknown]
  - Product use issue [Unknown]
  - Product use in unapproved indication [None]
